FAERS Safety Report 4305535-8 (Version None)
Quarter: 2004Q1

REPORT INFORMATION
  Report Type: 
  Country: None (occurrence: None)
  Receive Date: 20040226
  Receipt Date: 20031117
  Transmission Date: 20041129
  Serious: No
  Sender: FDA-Public Use
  Company Number: US-BRISTOL-MYERS SQUIBB COMPANY-12437752

PATIENT
  Age: 49 Year
  Sex: Male
  Weight: 131 kg

DRUGS (7)
  1. ABILIFY [Suspect]
     Indication: BIPOLAR DISORDER
     Route: 048
     Dates: start: 20031001
  2. ABILIFY [Suspect]
     Indication: SCHIZOPHRENIA
     Route: 048
     Dates: start: 20031001
  3. DEPAKOTE [Concomitant]
  4. LASIX [Concomitant]
  5. POTASSIUM SUPPLEMENT [Concomitant]
  6. SONATA [Concomitant]
  7. LIPITOR [Concomitant]

REACTIONS (5)
  - DECREASED APPETITE [None]
  - HAEMATOCHEZIA [None]
  - SLEEP DISORDER [None]
  - SMOKER [None]
  - WEIGHT DECREASED [None]
